FAERS Safety Report 4621863-0 (Version None)
Quarter: 2005Q1

REPORT INFORMATION
  Report Type: 
  Country: None (occurrence: None)
  Receive Date: 20050329
  Receipt Date: 20050317
  Transmission Date: 20050727
  Serious: Yes (Other)
  Sender: FDA-Public Use
  Company Number: US-BRISTOL-MYERS SQUIBB COMPANY-12902169

PATIENT
  Age: 65 Year
  Sex: Male

DRUGS (7)
  1. KENALOG-40 [Suspect]
     Indication: MACULAR OEDEMA
     Route: 031
     Dates: start: 20050316, end: 20050316
  2. COUMADIN [Concomitant]
  3. LIPITOR [Concomitant]
  4. VITAMIN C [Concomitant]
  5. FISH OIL [Concomitant]
  6. GARLIC [Concomitant]
  7. MULTI-VITAMINS [Concomitant]

REACTIONS (2)
  - RETINAL HAEMORRHAGE [None]
  - VISION BLURRED [None]
